FAERS Safety Report 5817662-4 (Version None)
Quarter: 2008Q4

REPORT INFORMATION
  Report Type: 
  Country: None (occurrence: None)
  Receive Date: 20080716
  Receipt Date: 20080702
  Transmission Date: 20090506
  Serious: Yes (Hospitalization)
  Sender: FDA-Public Use
  Company Number: 19729

PATIENT
  Age: 64 Year
  Sex: Male

DRUGS (9)
  1. METHOTREXATE SODIUM [Suspect]
  2. ENBREL [Suspect]
     Indication: RHEUMATOID ARTHRITIS
     Dosage: 25 MG 2/WK
  3. ATENOLOL [Suspect]
  4. ACETAMINOPHEN WITH PROPOXYPHENE HCL TAB [Suspect]
  5. PREDNISOLONE [Suspect]
  6. VIOXX [Suspect]
  7. CALCIUM [Concomitant]
  8. GLICLAZIDE [Suspect]
  9. VITAMIN D [Concomitant]

REACTIONS (2)
  - DIVERTICULUM [None]
  - ENTEROVESICAL FISTULA [None]
